FAERS Safety Report 23788723 (Version 1)
Quarter: 2024Q2

REPORT INFORMATION
  Report Type: Spontaneous
  Country: BR (occurrence: BR)
  Receive Date: 20240426
  Receipt Date: 20240426
  Transmission Date: 20240715
  Serious: Yes (Other)
  Sender: FDA-Public Use
  Company Number: BR-002147023-NVSC2024BR086330

PATIENT
  Sex: Female

DRUGS (2)
  1. AMLODIPINE\VALSARTAN [Suspect]
     Active Substance: AMLODIPINE\VALSARTAN
     Indication: Blood pressure measurement
     Dosage: UNK (320 MG + 5 MG FILM COATED TABLETS CONTAINED IN ALUMINUM /ALUMINUM BLISTER X 28)
     Route: 065
  2. DIOVAN [Suspect]
     Active Substance: VALSARTAN
     Indication: Product used for unknown indication
     Dosage: UNK
     Route: 065

REACTIONS (9)
  - Diabetes mellitus [Unknown]
  - Syncope [Recovered/Resolved]
  - Anaemia [Recovered/Resolved]
  - Blood pressure abnormal [Recovered/Resolved]
  - Malaise [Recovered/Resolved]
  - Renal disorder [Recovered/Resolved]
  - Eating disorder [Recovered/Resolved]
  - Weight decreased [Unknown]
  - Underdose [Recovered/Resolved]

NARRATIVE: CASE EVENT DATE: 20230101
